FAERS Safety Report 12350380 (Version 1)
Quarter: 2016Q2

REPORT INFORMATION
  Report Type: Spontaneous
  Country: US (occurrence: US)
  Receive Date: 20160510
  Receipt Date: 20160510
  Transmission Date: 20160815
  Serious: No
  Sender: FDA-Public Use
  Company Number: US-PFIZER INC-2016234514

PATIENT
  Age: 48 Year
  Sex: Female

DRUGS (7)
  1. IBUPROFEN. [Concomitant]
     Active Substance: IBUPROFEN
     Indication: PAIN
     Dosage: 200 MG, EVERY 6 HOURS AS NEEDED
     Route: 048
     Dates: start: 201405
  2. GABAPENTIN. [Suspect]
     Active Substance: GABAPENTIN
     Indication: NEUROPATHY PERIPHERAL
     Dosage: ONE 300MG CAPSULE THREE TIMES DAILY
     Dates: start: 201405, end: 201505
  3. GABAPENTIN. [Suspect]
     Active Substance: GABAPENTIN
     Dosage: TWO CAPSULES THREE TIMES DAILY
     Dates: start: 201410
  4. GABAPENTIN. [Suspect]
     Active Substance: GABAPENTIN
     Dosage: THREE CAPSULES THREE TIMES DAILY
  5. IBUPROFEN. [Concomitant]
     Active Substance: IBUPROFEN
     Indication: LIMB INJURY
     Dosage: 800 MG, 3X/DAY
  6. CENTRUM [Concomitant]
     Active Substance: VITAMINS
     Indication: ASTHENIA
     Dosage: 1 DF, DAILY
     Dates: start: 201405
  7. PERCOCET [Concomitant]
     Active Substance: ACETAMINOPHEN\OXYCODONE HYDROCHLORIDE
     Indication: PAIN
     Dosage: 1 DF, AS NEEDED
     Dates: start: 201405

REACTIONS (1)
  - Drug ineffective for unapproved indication [Unknown]

NARRATIVE: CASE EVENT DATE: 201405
